FAERS Safety Report 5541974-5 (Version None)
Quarter: 2007Q4

REPORT INFORMATION
  Report Type: 
  Country: None (occurrence: None)
  Receive Date: 20071205
  Receipt Date: 20071121
  Transmission Date: 20080405
  Serious: Yes (Other)
  Sender: FDA-Public Use
  Company Number: MC200700715

PATIENT
  Age: 72 Year
  Sex: Male

DRUGS (7)
  1. ANGIOMAX [Suspect]
     Indication: SURGERY
     Dosage: INTRAVENOUS
     Route: 042
     Dates: start: 20070712, end: 20070712
  2. SIMVASTATIN [Concomitant]
  3. XYLOCAIN (LIDOCAINE) SOLUTION (EXCEPT SYRUP) [Concomitant]
  4. ASPIRIN [Concomitant]
  5. ISOSORBIDE MONONITRATE (ISOSORBIDE MONONITRATE) TABLET [Concomitant]
  6. VISIPAQUE (IODIXANOL) SOLUTION (EXCEPT SYRUP) [Concomitant]
  7. PLAVIX (CLOPIDOGREL) TABLET [Concomitant]

REACTIONS (4)
  - CORONARY ARTERY OCCLUSION [None]
  - CORONARY ARTERY THROMBOSIS [None]
  - DRUG INEFFECTIVE [None]
  - POST PROCEDURAL COMPLICATION [None]
